FAERS Safety Report 5122362-2 (Version None)
Quarter: 2006Q4

REPORT INFORMATION
  Report Type: 
  Country: None (occurrence: None)
  Receive Date: 20061004
  Receipt Date: 20060922
  Transmission Date: 20070319
  Serious: Yes (Other)
  Sender: FDA-Public Use
  Company Number: WAES 0609USA05167

PATIENT
  Age: 66 Year
  Sex: Male

DRUGS (9)
  1. COZAAR [Suspect]
     Dosage: PO
     Route: 048
  2. CARDURA [Concomitant]
  3. DEMADEX [Concomitant]
  4. K-DUR 10 [Concomitant]
  5. NORVASC [Concomitant]
  6. PRAVACHOL [Concomitant]
  7. ATENOLOL [Concomitant]
  8. GLIPIZIDE [Concomitant]
  9. PREDNISONE TAB [Concomitant]

REACTIONS (2)
  - DIABETES MELLITUS [None]
  - HEART TRANSPLANT [None]
